FAERS Safety Report 8774171 (Version 1)
Quarter: 2012Q4

REPORT INFORMATION
  Report Type: 
  Country: RU (occurrence: RU)
  Receive Date: 20120907
  Receipt Date: 20120907
  Transmission Date: 20130627
  Serious: Yes (Life-Threatening)
  Sender: FDA-Public Use
  Company Number: RU-ASTRAZENECA-2012SE69530

PATIENT
  Age: 64 Year
  Sex: Male

DRUGS (4)
  1. BRILINTA [Suspect]
     Indication: ACUTE CORONARY SYNDROME
     Route: 048
     Dates: start: 20120810
  2. BRILINTA [Suspect]
     Indication: ELECTROCARDIOGRAM ST SEGMENT ELEVATION
     Route: 048
     Dates: start: 20120810
  3. BRILINTA [Suspect]
     Indication: ACUTE CORONARY SYNDROME
     Route: 048
     Dates: start: 201208
  4. BRILINTA [Suspect]
     Indication: ELECTROCARDIOGRAM ST SEGMENT ELEVATION
     Route: 048
     Dates: start: 201208

REACTIONS (1)
  - Thrombosis in device [Recovered/Resolved]
